FAERS Safety Report 5367510-4 (Version None)
Quarter: 2007Q2

REPORT INFORMATION
  Report Type: 
  Country: None (occurrence: None)
  Receive Date: 20070622
  Receipt Date: 20061023
  Transmission Date: 20071010
  Serious: No
  Sender: FDA-Public Use
  Company Number: US-ASTRAZENECA-2006UW20600

PATIENT
  Age: 68 Year
  Sex: Female
  Weight: 94.3 kg

DRUGS (4)
  1. PULMICORT RESPULES [Suspect]
     Route: 055
  2. RHINOCORT [Concomitant]
     Dosage: 32MCG 120 METER SPRAY/UNIT
     Route: 045
  3. SINGULAIR [Concomitant]
  4. CIPROFLOXACIN IN SALINE SOLUTION [Concomitant]

REACTIONS (1)
  - ANOSMIA [None]
